FAERS Safety Report 24275102 (Version 1)
Quarter: 2024Q3

REPORT INFORMATION
  Report Type: Spontaneous
  Country: AR (occurrence: AR)
  Receive Date: 20240902
  Receipt Date: 20240902
  Transmission Date: 20241016
  Serious: Yes (Disabling)
  Sender: AMGEN
  Company Number: AR-PFIZER INC-202400200712

PATIENT
  Age: 71 Year
  Sex: Female

DRUGS (1)
  1. ENBREL [Suspect]
     Active Substance: BENZYL ALCOHOL\ETANERCEPT
     Indication: Rheumatoid arthritis
     Dosage: 50 MG, WEEKLY
     Route: 065
     Dates: start: 20071101

REACTIONS (3)
  - Mobility decreased [Unknown]
  - Gait disturbance [Unknown]
  - Influenza [Unknown]

NARRATIVE: CASE EVENT DATE: 20240624
